FAERS Safety Report 8202506-6 (Version None)
Quarter: 2012Q1

REPORT INFORMATION
  Report Type: 
  Country: None (occurrence: None)
  Receive Date: 20120312
  Receipt Date: 20120305
  Transmission Date: 20120608
  Serious: Yes (Hospitalization)
  Sender: FDA-Public Use
  Company Number: US-BAYER-2012-021790

PATIENT
  Age: 18 Year
  Sex: Female

DRUGS (2)
  1. BETASERON [Suspect]
     Indication: RELAPSING-REMITTING MULTIPLE SCLEROSIS
     Dosage: 4 MIU, QOD
     Route: 058
     Dates: start: 20120218
  2. IBUPROFEN (ADVIL) [Suspect]
     Dosage: UNK UNK, PRN

REACTIONS (5)
  - BACK PAIN [None]
  - NAUSEA [None]
  - BLOOD CREATININE INCREASED [None]
  - TOXIC NEUROPATHY [None]
  - RENAL IMPAIRMENT [None]
